FAERS Safety Report 25910532 (Version 4)
Quarter: 2025Q4

REPORT INFORMATION
  Report Type: Report from Study
  Country: US (occurrence: US)
  Receive Date: 20251013
  Receipt Date: 20251112
  Transmission Date: 20260117
  Serious: Yes (Other)
  Sender: ABBVIE
  Company Number: US-ABBVIE-6497883

PATIENT
  Age: 73 Year
  Sex: Male
  Weight: 76.203 kg

DRUGS (16)
  1. RINVOQ [Suspect]
     Active Substance: UPADACITINIB
     Indication: Colitis ulcerative
     Dosage: FORM STRENGTH: 15 MILLIGRAM?DOSE REDUCED
     Route: 048
     Dates: start: 20250916, end: 20251022
  2. RINVOQ [Suspect]
     Active Substance: UPADACITINIB
     Indication: Colitis ulcerative
     Dosage: FORM STRENGTH: 45 MILLIGRAM
     Route: 048
     Dates: start: 20250102, end: 20250915
  3. RINVOQ [Suspect]
     Active Substance: UPADACITINIB
     Indication: Colitis ulcerative
     Dosage: FORM STRENGTH: 45 MILLIGRAM
     Route: 048
     Dates: start: 20251023
  4. VITAMIN C [Concomitant]
     Active Substance: ASCORBIC ACID
     Indication: Vitamin supplementation
     Dosage: FREQUENCY TEXT: UNKNOWN, START DATE TEXT: UNKNOWN, STOP DATE TEXT: UNKNOWN
  5. PROBIOTICS NOS [Concomitant]
     Active Substance: PROBIOTICS NOS
     Indication: Probiotic therapy
     Dosage: FREQUENCY TEXT: UNKNOWN, START DATE TEXT: UNKNOWN, STOP DATE TEXT: UNKNOWN
  6. VITAMIN B COMPLEX [Concomitant]
     Active Substance: CYANOCOBALAMIN\DEXPANTHENOL\NIACINAMIDE\PYRIDOXINE HYDROCHLORIDE\RIBOFLAVIN 5^-PHOSPHATE SODIUM\THIA
     Indication: Vitamin supplementation
  7. PLAVIX [Concomitant]
     Active Substance: CLOPIDOGREL BISULFATE
     Indication: Cardiac disorder
     Dosage: FREQUENCY TEXT: UNKNOWN, START DATE TEXT: UNKNOWN, STOP DATE TEXT: UNKNOWN
  8. DILTIAZEM [Concomitant]
     Active Substance: DILTIAZEM
     Indication: Cardiac disorder
     Dosage: FREQUENCY TEXT: UNKNOWN, START DATE TEXT: UNKNOWN, STOP DATE TEXT: UNKNOWN
  9. FLOMAX [Concomitant]
     Active Substance: TAMSULOSIN HYDROCHLORIDE
     Indication: Urinary tract disorder
     Dosage: UNKNOWN
  10. PANTOPRAZOLE [Concomitant]
     Active Substance: PANTOPRAZOLE
     Indication: Colitis ulcerative
     Dosage: FREQUENCY TEXT: UNKNOWN, START DATE TEXT: UNKNOWN, STOP DATE TEXT: UNKNOWN
  11. VITAMIN D [Concomitant]
     Active Substance: VITAMIN D NOS
     Indication: Vitamin supplementation
     Dosage: FREQUENCY TEXT: UNKNOWN, START DATE TEXT: UNKNOWN, STOP DATE TEXT: UNKNOWN
  12. FLUTICASONE FUROATE\VILANTEROL TRIFENATATE [Concomitant]
     Active Substance: FLUTICASONE FUROATE\VILANTEROL TRIFENATATE
     Indication: Lung disorder
     Dosage: FREQUENCY TEXT: UNKNOWN
  13. ZINC [Concomitant]
     Active Substance: ZINC
     Indication: Mineral supplementation
     Dosage: FREQUENCY TEXT: UNKNOWN, START DATE TEXT: UNKNOWN, STOP DATE TEXT: UNKNOWN
  14. COMBIVENT [Concomitant]
     Active Substance: ALBUTEROL SULFATE\IPRATROPIUM BROMIDE
     Indication: Lung disorder
     Dosage: FREQUENCY TEXT: UNKNOWN INHALER
  15. DUTASTERIDE [Concomitant]
     Active Substance: DUTASTERIDE
     Indication: Urinary tract disorder
     Dosage: UNKNOWN
  16. MIRABEGRON [Concomitant]
     Active Substance: MIRABEGRON
     Indication: Urinary tract disorder
     Dosage: UNKNOWN

REACTIONS (6)
  - Cardiac disorder [Unknown]
  - Pneumonia [Recovered/Resolved]
  - Frequent bowel movements [Recovering/Resolving]
  - Dyspnoea [Recovered/Resolved]
  - Diarrhoea [Not Recovered/Not Resolved]
  - Faeces soft [Recovering/Resolving]

NARRATIVE: CASE EVENT DATE: 20250101
